FAERS Safety Report 12659286 (Version 1)
Quarter: 2016Q3

REPORT INFORMATION
  Report Type: Other
  Country: CA (occurrence: CA)
  Receive Date: 20160817
  Receipt Date: 20160817
  Transmission Date: 20161109
  Serious: Yes (Other)
  Sender: FDA-Public Use
  Company Number: CA-VALIDUS PHARMACEUTICALS LLC-CA-2016VAL002441

PATIENT
  Age: 49 Year
  Sex: Male

DRUGS (5)
  1. MORPHINE SULFATE. [Suspect]
     Active Substance: MORPHINE SULFATE
     Indication: HEADACHE
     Dosage: 25 MG, UNK
  2. BUTRANS [Suspect]
     Active Substance: BUPRENORPHINE
     Indication: HEADACHE
     Dosage: 10 ?G, EVERY HOUR
     Route: 062
  3. CODEINE [Suspect]
     Active Substance: CODEINE
     Indication: HEADACHE
     Dosage: UNK
  4. DEMEROL [Suspect]
     Active Substance: MEPERIDINE HYDROCHLORIDE
     Indication: HEADACHE
     Dosage: UNK
  5. BUTRANS [Suspect]
     Active Substance: BUPRENORPHINE
     Dosage: 5 ?G, EVERY HOUR
     Route: 062

REACTIONS (8)
  - Dyspnoea [Unknown]
  - Intentional product misuse [Unknown]
  - Drug abuse [Unknown]
  - Mobility decreased [Unknown]
  - Drug ineffective [Unknown]
  - Asthenia [Unknown]
  - Euphoric mood [Unknown]
  - Accidental overdose [Unknown]
